FAERS Safety Report 4972382-3 (Version None)
Quarter: 2006Q2

REPORT INFORMATION
  Report Type: 
  Country: None (occurrence: None)
  Receive Date: 20060413
  Receipt Date: 20060404
  Transmission Date: 20061013
  Serious: Yes (Hospitalization)
  Sender: FDA-Public Use
  Company Number: FR-MERCK-0604FRA00010

PATIENT
  Age: 4 Year
  Sex: Male
  Weight: 18 kg

DRUGS (13)
  1. INDOCIN [Suspect]
     Indication: JUVENILE ARTHRITIS
     Route: 048
     Dates: start: 20050615, end: 20060103
  2. INDOCIN [Suspect]
     Indication: UVEITIS
     Route: 048
     Dates: start: 20050615, end: 20060103
  3. PREDNISOLONE [Suspect]
     Indication: JUVENILE ARTHRITIS
     Route: 048
     Dates: start: 20050615, end: 20051205
  4. PREDNISOLONE [Suspect]
     Route: 048
     Dates: start: 20051209, end: 20060103
  5. PREDNISOLONE [Suspect]
     Indication: UVEITIS
     Route: 048
     Dates: start: 20050615, end: 20051205
  6. PREDNISOLONE [Suspect]
     Route: 048
     Dates: start: 20051209, end: 20060103
  7. METHOTREXATE [Suspect]
     Indication: JUVENILE ARTHRITIS
     Route: 030
     Dates: start: 20050615, end: 20060103
  8. METHOTREXATE [Suspect]
     Indication: UVEITIS
     Route: 030
     Dates: start: 20050615, end: 20060103
  9. ESOMEPRAZOLE MAGNESIUM [Concomitant]
     Indication: PROPHYLAXIS AGAINST GASTROINTESTINAL ULCER
     Route: 048
     Dates: start: 20050615, end: 20051201
  10. METHYLPREDNISOLONE SODIUM SUCCINATE [Concomitant]
     Indication: JUVENILE ARTHRITIS
     Route: 042
     Dates: start: 20051206, end: 20051208
  11. METHYLPREDNISOLONE SODIUM SUCCINATE [Concomitant]
     Indication: UVEITIS
     Route: 042
     Dates: start: 20051206, end: 20051208
  12. DEXAMETHASONE AND OXYTETRACYCLINE [Concomitant]
     Indication: CATARACT OPERATION
     Route: 047
     Dates: start: 20051207, end: 20051208
  13. OMEPRAZOLE [Concomitant]
     Indication: PROPHYLAXIS AGAINST GASTROINTESTINAL ULCER
     Route: 048
     Dates: start: 20051207, end: 20051208

REACTIONS (1)
  - VARICELLA [None]
